FAERS Safety Report 8450849-3 (Version None)
Quarter: 2012Q2

REPORT INFORMATION
  Report Type: 
  Country: None (occurrence: None)
  Receive Date: 20120620
  Receipt Date: 20120606
  Transmission Date: 20120825
  Serious: Yes (Hospitalization)
  Sender: FDA-Public Use
  Company Number: MX-AMGEN-QUU430997

PATIENT
  Age: 55 Year
  Sex: Female
  Weight: 78.5 kg

DRUGS (7)
  1. ATENOLOL [Concomitant]
     Indication: HYPERTENSION
     Dosage: 100 MG, QD
     Route: 048
     Dates: start: 20050601
  2. FOLIC ACID [Concomitant]
     Indication: PROPHYLAXIS
     Dosage: 5 MG, 3 TIMES PER WEEK
     Route: 048
     Dates: start: 20090101
  3. PREDNISONE TAB [Concomitant]
     Indication: RHEUMATOID ARTHRITIS
     Dosage: 5 MG, 1X/DAY
     Route: 048
     Dates: start: 20090101
  4. ACETAMINOPHEN [Concomitant]
     Indication: RHEUMATOID ARTHRITIS
     Dosage: 500 MG, 3X/DAY
     Route: 048
     Dates: start: 20090101
  5. LEVOTHYROXINE SODIUM [Concomitant]
     Indication: HYPOTHYROIDISM
     Dosage: 125 MUG, QD
     Route: 048
     Dates: start: 20040601
  6. ETANERCEPT [Suspect]
     Indication: HYPOTHYROIDISM
     Dosage: 50 MG, QWK
     Route: 058
     Dates: start: 20100504
  7. OMEPRAZOLE [Concomitant]
     Indication: GASTRITIS
     Dosage: 20 DAILY (UNITS UNSPECIFIED)
     Route: 048
     Dates: start: 20100101

REACTIONS (1)
  - ATRIAL FIBRILLATION [None]
